FAERS Safety Report 13185584 (Version 1)
Quarter: 2017Q1

REPORT INFORMATION
  Report Type: Spontaneous
  Country: NL (occurrence: NL)
  Receive Date: 20170203
  Receipt Date: 20170203
  Transmission Date: 20170428
  Serious: Yes (Life-Threatening, Hospitalization, Other)
  Sender: FDA-Public Use
  Company Number: NL-SA-199910471DDC

PATIENT
  Age: 67 Year
  Sex: Male

DRUGS (3)
  1. CARVEDILOL. [Suspect]
     Active Substance: CARVEDILOL
     Indication: HYPERTENSION
     Route: 065
     Dates: end: 199809
  2. FEXOFENADINE HYDROCHLORIDE. [Suspect]
     Active Substance: FEXOFENADINE HYDROCHLORIDE
     Indication: SKIN REACTION
     Route: 048
     Dates: start: 199809, end: 19981030
  3. FEXOFENADINE HYDROCHLORIDE. [Suspect]
     Active Substance: FEXOFENADINE HYDROCHLORIDE
     Indication: SKIN REACTION
     Route: 048
     Dates: start: 19981105, end: 19981111

REACTIONS (8)
  - Ventricular fibrillation [Recovered/Resolved]
  - Condition aggravated [Not Recovered/Not Resolved]
  - Electrocardiogram QT prolonged [Not Recovered/Not Resolved]
  - Syncope [Recovered/Resolved]
  - Circulatory collapse [Recovered/Resolved]
  - Tooth fracture [Unknown]
  - Ventricular tachycardia [Not Recovered/Not Resolved]
  - Pruritus [Unknown]

NARRATIVE: CASE EVENT DATE: 19981030
